FAERS Safety Report 11616736 (Version 2)
Quarter: 2015Q4

REPORT INFORMATION
  Report Type: Spontaneous
  Country: PT (occurrence: PT)
  Receive Date: 20151009
  Receipt Date: 20151016
  Transmission Date: 20160304
  Serious: No
  Sender: FDA-Public Use
  Company Number: PT-009507513-1510PRT002064

PATIENT
  Sex: Female

DRUGS (11)
  1. CO-DIOVAN [Concomitant]
     Active Substance: HYDROCHLOROTHIAZIDE\VALSARTAN
     Dosage: 1/2 TABLET AT DINNER, QD
     Route: 048
  2. CHOLECALCIFEROL [Concomitant]
     Active Substance: CHOLECALCIFEROL
     Dosage: UNK, QM
  3. FOLICIL [Concomitant]
     Active Substance: FOLIC ACID
     Dosage: 1 TABLET AT LUNCH FOR LONG TIME
  4. ASPIRINA [Concomitant]
     Active Substance: ASPIRIN
     Dosage: 1 DF, QD
     Dates: start: 201408
  5. FOSAVANCE [Suspect]
     Active Substance: ALENDRONATE SODIUM\CHOLECALCIFEROL
     Dosage: 1 DF, WEEKLY
     Route: 048
  6. CITICOLINE [Concomitant]
     Active Substance: CITICOLINE
     Dosage: 100 MG/ML, TID
  7. FOSAVANCE [Suspect]
     Active Substance: ALENDRONATE SODIUM\CHOLECALCIFEROL
     Dosage: 1 DF, WEEKLY
     Route: 048
     Dates: start: 201507, end: 20150910
  8. TENORMIN [Concomitant]
     Active Substance: ATENOLOL
     Dosage: 1/2 TABLET AT BREAKFAST, QD
     Route: 048
  9. SPASMOMEN [Concomitant]
     Indication: DIARRHOEA
     Dosage: 40 MG, QD
  10. DECALCIT [Concomitant]
     Dosage: 1 DF, UNK
  11. VICTAN [Concomitant]
     Active Substance: ETHYL LOFLAZEPATE
     Dosage: UNK, QD

REACTIONS (1)
  - Diarrhoea [Recovering/Resolving]
